FAERS Safety Report 10421269 (Version 1)
Quarter: 2014Q3

REPORT INFORMATION
  Report Type: Spontaneous
  Country: CH (occurrence: CH)
  Receive Date: 20140830
  Receipt Date: 20140830
  Transmission Date: 20150326
  Serious: Yes (Other)
  Sender: FDA-Public Use
  Company Number: PHHY2014CH107435

PATIENT
  Sex: Female

DRUGS (2)
  1. TAMOXIFEN [Suspect]
     Active Substance: TAMOXIFEN
     Dosage: UKN
  2. LEPONEX [Suspect]
     Active Substance: CLOZAPINE
     Dosage: UKN

REACTIONS (2)
  - Breast cancer [Unknown]
  - White blood cell count decreased [Unknown]
